FAERS Safety Report 19537676 (Version 2)
Quarter: 2024Q1

REPORT INFORMATION
  Report Type: Spontaneous
  Country: US (occurrence: US)
  Receive Date: 20210713
  Receipt Date: 20240105
  Transmission Date: 20240409
  Serious: No
  Sender: FDA-Public Use
  Company Number: US-SA-SAC20210708000111

PATIENT
  Age: 19 Year
  Sex: Female

DRUGS (3)
  1. DUPIXENT [Suspect]
     Active Substance: DUPILUMAB
     Indication: Dermatitis atopic
     Dosage: 300 MG, QOW
     Route: 058
     Dates: start: 20190516
  2. PREDNISONE [Concomitant]
     Active Substance: PREDNISONE
     Dosage: UNK
  3. TRIAMCINOLONE ACETONIDE [Concomitant]
     Active Substance: TRIAMCINOLONE ACETONIDE
     Dosage: UNK

REACTIONS (3)
  - Headache [Unknown]
  - Inappropriate schedule of product administration [Unknown]
  - Drug effect less than expected [Unknown]

NARRATIVE: CASE EVENT DATE: 20230901
